FAERS Safety Report 4768638-X (Version None)
Quarter: 2005Q3

REPORT INFORMATION
  Report Type: 
  Country: None (occurrence: None)
  Receive Date: 20050914
  Receipt Date: 20050810
  Transmission Date: 20060218
  Serious: Yes (Other)
  Sender: FDA-Public Use
  Company Number: US-AMGEN-US146123

PATIENT
  Sex: Female

DRUGS (4)
  1. ETANERCEPT [Suspect]
     Indication: JUVENILE ARTHRITIS
     Route: 058
     Dates: start: 20010401
  2. METHOTREXATE [Concomitant]
     Route: 048
  3. KETOPROFEN [Concomitant]
  4. NAPROXEN [Concomitant]

REACTIONS (1)
  - RAYNAUD'S PHENOMENON [None]
